FAERS Safety Report 21324401 (Version 1)
Quarter: 2022Q3

REPORT INFORMATION
  Report Type: Spontaneous
  Country: US (occurrence: None)
  Receive Date: 20220911
  Receipt Date: 20220911
  Transmission Date: 20221026
  Serious: Yes (Disabling)
  Sender: FDA-Public Use
  Company Number: None

PATIENT
  Age: 40 Year
  Sex: Male
  Weight: 72 kg

DRUGS (4)
  1. BUPROPION [Suspect]
     Active Substance: BUPROPION
     Indication: Depression
     Dosage: FREQUENCY : DAILY;?
     Route: 048
     Dates: start: 20170922, end: 20171015
  2. ENBREL [Concomitant]
     Active Substance: ETANERCEPT
     Dates: start: 20120901
  3. METHOTREXATE [Concomitant]
     Active Substance: METHOTREXATE
     Dates: start: 20121221
  4. ASPIRIN [Concomitant]
     Active Substance: ASPIRIN
     Dates: start: 20121221

REACTIONS (2)
  - Tinnitus [None]
  - Ear pain [None]

NARRATIVE: CASE EVENT DATE: 20170922
